FAERS Safety Report 8332741-8 (Version None)
Quarter: 2012Q1

REPORT INFORMATION
  Report Type: 
  Country: None (occurrence: None)
  Receive Date: 20120327
  Receipt Date: 20100806
  Transmission Date: 20120608
  Serious: Yes (Hospitalization)
  Sender: FDA-Public Use
  Company Number: PHHY2010US08974

PATIENT
  Age: 70 Year
  Sex: Male

DRUGS (10)
  1. LISINOPRIL [Concomitant]
  2. METOPROLOL TARTRATE [Concomitant]
  3. PANTOPRAZOLE [Concomitant]
  4. NOROXIN [Concomitant]
  5. DOXAZON [Concomitant]
  6. SPRYCEL [Concomitant]
  7. LASIX [Concomitant]
  8. GLEEVEC [Suspect]
     Indication: CHRONIC MYELOID LEUKAEMIA
     Dosage: 400 MG DAILY, ORAL
     Route: 048
     Dates: start: 20090501, end: 20100201
  9. VALTREX [Concomitant]
  10. FLUCONAZOLE [Concomitant]

REACTIONS (4)
  - CHRONIC MYELOID LEUKAEMIA [None]
  - PLATELET COUNT DECREASED [None]
  - WHITE BLOOD CELL COUNT ABNORMAL [None]
  - CONDITION AGGRAVATED [None]
